FAERS Safety Report 5231453-7 (Version None)
Quarter: 2007Q1

REPORT INFORMATION
  Report Type: 
  Country: None (occurrence: None)
  Receive Date: 20070206
  Receipt Date: 20070126
  Transmission Date: 20070707
  Serious: Yes (Hospitalization, Other)
  Sender: FDA-Public Use
  Company Number: PHEH2006US13338

PATIENT
  Age: 61 Year
  Sex: Female
  Weight: 111 kg

DRUGS (4)
  1. LOTENSIN [Suspect]
     Indication: HYPERTENSION
     Dosage: 5 MG, QD
     Dates: start: 19860101
  2. LOTENSIN [Suspect]
     Dosage: 10 MG, QD
  3. LOTENSIN [Suspect]
     Dosage: 20 MG, BID
     Dates: start: 20040101
  4. SYNTHROID [Concomitant]
     Indication: HYPOTHYROIDISM

REACTIONS (9)
  - APHASIA [None]
  - BACK PAIN [None]
  - CEREBROVASCULAR ACCIDENT [None]
  - DROOLING [None]
  - DYSARTHRIA [None]
  - FALL [None]
  - HYPERTENSION [None]
  - HYPOAESTHESIA FACIAL [None]
  - LIMB INJURY [None]
